FAERS Safety Report 9301448 (Version 1)
Quarter: 2013Q2

REPORT INFORMATION
  Report Type: Spontaneous
  Country: FI (occurrence: FI)
  Receive Date: 20130520
  Receipt Date: 20130520
  Transmission Date: 20140414
  Serious: Yes (Other)
  Sender: FDA-Public Use
  Company Number: FI-RB-053656-13

PATIENT
  Sex: Female

DRUGS (5)
  1. SUBUTEX [Suspect]
     Dosage: UNKNOWN DOSING DETAILS
     Route: 064
  2. SUBUTEX [Suspect]
     Indication: DRUG DEPENDENCE
     Dosage: UNKNOWN EXACT DOSING DETAILS, MOTHER^S DOSE REDUCED TO UNKNOWN AMOUNT
     Route: 064
  3. BENZODIAZEPINES [Suspect]
     Indication: PRODUCT USED FOR UNKNOWN INDICATION
     Dosage: UNKNOWN DOSING DETAILS
     Route: 064
     Dates: end: 2008
  4. INSULIN [Suspect]
     Indication: GESTATIONAL DIABETES
     Dosage: UNKNOWN DOSING DETAILS, MOTHER RECEIVED AN INJECTION ONCE A DAY
     Route: 064
  5. ANTIBIOTIC [Suspect]
     Indication: CELLULITIS
     Dosage: UNKNOWN DOSING DETAILS
     Route: 064

REACTIONS (2)
  - Foetal exposure during pregnancy [Recovered/Resolved]
  - Premature baby [Recovered/Resolved]
